FAERS Safety Report 23320399 (Version 2)
Quarter: 2024Q4

REPORT INFORMATION
  Report Type: Spontaneous
  Country: US (occurrence: US)
  Receive Date: 20231220
  Receipt Date: 20241028
  Transmission Date: 20250114
  Serious: No
  Sender: PFIZER
  Company Number: US-PFIZER INC-PV202300203000

PATIENT
  Age: 91 Year
  Sex: Female

DRUGS (2)
  1. ESTRING [Suspect]
     Active Substance: ESTRADIOL
     Indication: Atrophic vulvovaginitis
     Dosage: UNK
  2. ESTRING [Suspect]
     Active Substance: ESTRADIOL
     Indication: Urinary tract infection
     Dosage: 7.5 UG/24H, INSERT 1 RING INTRAVAGINALLY EVERY 3 MONTHS
     Route: 067
     Dates: start: 20241023

REACTIONS (1)
  - Illness [Not Recovered/Not Resolved]
